FAERS Safety Report 7512941-7 (Version None)
Quarter: 2011Q2

REPORT INFORMATION
  Report Type: 
  Country: None (occurrence: None)
  Receive Date: 20110525
  Receipt Date: 20110525
  Transmission Date: 20111010
  Serious: Yes (Disabling)
  Sender: FDA-Public Use
  Company Number: None

PATIENT
  Age: 39 Year
  Sex: Male
  Weight: 88.4514 kg

DRUGS (1)
  1. SEROQUEL [Suspect]
     Indication: SLEEP DISORDER
     Dosage: 100MG ONE HALF TO ONE PR PO
     Route: 048
     Dates: start: 20090816, end: 20110505

REACTIONS (1)
  - TARDIVE DYSKINESIA [None]
